FAERS Safety Report 4834102-2 (Version None)
Quarter: 2005Q4

REPORT INFORMATION
  Report Type: 
  Country: None (occurrence: None)
  Receive Date: 20051122
  Receipt Date: 20050929
  Transmission Date: 20060501
  Serious: Yes (Other)
  Sender: FDA-Public Use
  Company Number: 200518878GDDC

PATIENT
  Age: 40 Year
  Sex: Female

DRUGS (3)
  1. FLAGYL [Suspect]
     Indication: TOOTH ABSCESS
     Dates: start: 20050901
  2. FLUDEX [Concomitant]
     Indication: HYPERTENSION
  3. APROVEL [Concomitant]
     Indication: HYPERTENSION

REACTIONS (1)
  - HYPOACUSIS [None]
